FAERS Safety Report 7290871-6 (Version None)
Quarter: 2011Q1

REPORT INFORMATION
  Report Type: 
  Country: None (occurrence: None)
  Receive Date: 20110201
  Receipt Date: 20110125
  Transmission Date: 20110831
  Serious: Yes (Hospitalization)
  Sender: FDA-Public Use
  Company Number: CAP11000019

PATIENT
  Age: 78 Year
  Sex: Female
  Weight: 45.4 kg

DRUGS (1)
  1. ACTONEL [Suspect]
     Dosage: 1 DF ONCE, ORAL
     Route: 048

REACTIONS (20)
  - PYREXIA [None]
  - PSEUDOENDOPHTHALMITIS [None]
  - DIZZINESS [None]
  - HYPOAESTHESIA [None]
  - LACRIMAL GLAND ENLARGEMENT [None]
  - OPTIC NERVE DISORDER [None]
  - SCLERAL DISORDER [None]
  - DIARRHOEA [None]
  - PERIORBITAL CELLULITIS [None]
  - RETINAL OEDEMA [None]
  - EXOPHTHALMOS [None]
  - EYE SWELLING [None]
  - FATIGUE [None]
  - LACRIMATION INCREASED [None]
  - RETINAL DETACHMENT [None]
  - C-REACTIVE PROTEIN INCREASED [None]
  - NAUSEA [None]
  - RED BLOOD CELL SEDIMENTATION RATE INCREASED [None]
  - BACTERIAL TEST POSITIVE [None]
  - VISUAL IMPAIRMENT [None]
